FAERS Safety Report 6343653-3 (Version None)
Quarter: 2009Q3

REPORT INFORMATION
  Report Type: 
  Country: None (occurrence: None)
  Receive Date: 20090908
  Receipt Date: 20090901
  Transmission Date: 20100115
  Serious: No
  Sender: FDA-Public Use
  Company Number: JP-EISAI INC.-E3810-03034-SPO-JP

PATIENT
  Age: 45 Year
  Sex: Female

DRUGS (3)
  1. PARIET (RABEPRAZOLE) [Suspect]
     Indication: REFLUX OESOPHAGITIS
     Route: 048
     Dates: start: 20090507, end: 20090608
  2. PREDONINE [Concomitant]
     Indication: DERMATOMYOSITIS
     Route: 048
  3. PREDONINE [Concomitant]
     Route: 048

REACTIONS (1)
  - THROMBOCYTOPENIA [None]
